FAERS Safety Report 21548720 (Version 1)
Quarter: 2022Q4

REPORT INFORMATION
  Report Type: Spontaneous
  Country: PT (occurrence: PT)
  Receive Date: 20221103
  Receipt Date: 20221103
  Transmission Date: 20230113
  Serious: Yes (Hospitalization, Other)
  Sender: FDA-Public Use
  Company Number: PT-GLAXOSMITHKLINE-PTCH2022GSK041794

PATIENT

DRUGS (5)
  1. DICLOFENAC SODIUM [Suspect]
     Active Substance: DICLOFENAC SODIUM
     Indication: Product used for unknown indication
     Dosage: UNK
  2. METAMIZOLE [Suspect]
     Active Substance: METAMIZOLE
     Indication: Product used for unknown indication
     Dosage: UNK
  3. ETORICOXIB [Suspect]
     Active Substance: ETORICOXIB
     Indication: Product used for unknown indication
     Dosage: UNK
  4. INFLIXIMAB [Concomitant]
     Active Substance: INFLIXIMAB
     Indication: Multiple organ dysfunction syndrome
     Dosage: 5 MG/KG
  5. DEXAMETHASONE [Concomitant]
     Active Substance: DEXAMETHASONE
     Indication: Multiple organ dysfunction syndrome
     Dosage: 100 MG, 1D

REACTIONS (9)
  - Toxic epidermal necrolysis [Unknown]
  - Pyrexia [Unknown]
  - Peri-implantitis [Unknown]
  - Stomatitis [Unknown]
  - Noninfective conjunctivitis [Unknown]
  - Rash maculo-papular [Unknown]
  - Condition aggravated [Unknown]
  - Nikolsky^s sign [Unknown]
  - Respiratory tract oedema [Unknown]
